FAERS Safety Report 18257836 (Version 1)
Quarter: 2020Q3

REPORT INFORMATION
  Report Type: Spontaneous
  Country: US (occurrence: US)
  Receive Date: 20200911
  Receipt Date: 20200911
  Transmission Date: 20201103
  Serious: No
  Sender: FDA-Public Use
  Company Number: US-PFIZER INC-2020341945

PATIENT
  Age: 62 Year
  Sex: Female

DRUGS (1)
  1. EUCRISA [Suspect]
     Active Substance: CRISABOROLE
     Indication: DERMATITIS
     Dosage: EUCRISA 60?G TUBE(S)/APPLY 1?2 TIMES DAILY/LOCATION ON THE BODY: THROUGHOUT

REACTIONS (3)
  - Off label use [Unknown]
  - Eye disorder [Unknown]
  - Product use in unapproved indication [Unknown]
